FAERS Safety Report 15538170 (Version 10)
Quarter: 2020Q2

REPORT INFORMATION
  Report Type: Spontaneous
  Country: RO (occurrence: RO)
  Receive Date: 20181022
  Receipt Date: 20200414
  Transmission Date: 20200713
  Serious: Yes (Hospitalization, Other)
  Sender: FDA-Public Use
  Company Number: RO-MYLANLABS-2018M1076181

PATIENT
  Age: 80 Year
  Sex: Male

DRUGS (49)
  1. LERCANIDIPINE [Suspect]
     Active Substance: LERCANIDIPINE
     Indication: HYPERTENSION
     Dosage: 10 MG, QD
     Route: 065
     Dates: start: 2012
  2. LERCANIDIPINE [Suspect]
     Active Substance: LERCANIDIPINE
     Dosage: 10 MG, QD
     Route: 065
  3. CANDESARTAN. [Suspect]
     Active Substance: CANDESARTAN
     Indication: HYPERTENSION
     Dosage: 16 MG, QD
     Route: 065
     Dates: start: 2012
  4. AMIODARONE [Suspect]
     Active Substance: AMIODARONE
     Indication: ATRIAL FIBRILLATION
     Dosage: UNK
     Route: 065
     Dates: start: 2015
  5. RAMIPRIL. [Suspect]
     Active Substance: RAMIPRIL
     Indication: ACUTE CORONARY SYNDROME
     Dosage: 5 MG, QD
     Route: 065
     Dates: start: 2016
  6. BISOPROLOL [Suspect]
     Active Substance: BISOPROLOL
     Indication: ACUTE CORONARY SYNDROME
     Dosage: UNK
     Route: 065
  7. LEVODOPA/CARBIDOPA [Suspect]
     Active Substance: CARBIDOPA\LEVODOPA
     Dosage: 275 MILLIGRAM, QD
  8. RASAGILINE. [Concomitant]
     Active Substance: RASAGILINE
     Dosage: UNK
     Route: 065
  9. ROSUVASTATIN. [Concomitant]
     Active Substance: ROSUVASTATIN
     Indication: DIZZINESS
  10. LERCANIDIPINE [Suspect]
     Active Substance: LERCANIDIPINE
     Dosage: 1 MILLIGRAM, QD
     Route: 065
     Dates: start: 2012
  11. LEVODOPA [Suspect]
     Active Substance: LEVODOPA
     Dosage: 250 MILLIGRAM,250 MG/ 25 MG (250 MG/ 25 MG, 1 IN 1 D)
     Dates: start: 2017
  12. LEVODOPA/CARBIDOPA [Suspect]
     Active Substance: CARBIDOPA\LEVODOPA
     Dosage: 250 MILLIGRAM, QD
     Dates: start: 2017
  13. ROSUVASTATIN. [Concomitant]
     Active Substance: ROSUVASTATIN
     Indication: CORONARY ARTERY DISEASE
  14. CLOPIDOGREL [Concomitant]
     Active Substance: CLOPIDOGREL BISULFATE
     Indication: CORONARY ARTERY DISEASE
     Dosage: 75 MG, QD
     Route: 005
     Dates: start: 2016
  15. LERCANIDIPINE [Suspect]
     Active Substance: LERCANIDIPINE
     Dosage: 10 MG, QD
     Route: 065
  16. CARBIDOPA. [Suspect]
     Active Substance: CARBIDOPA
     Indication: PARKINSON^S DISEASE
     Dosage: 25 MILLIGRAM,250 MG/ 25 MG (250 MG/ 25 MG, 1 IN 1 D)
     Route: 065
     Dates: start: 2017
  17. OMEPRAZOLE. [Concomitant]
     Active Substance: OMEPRAZOLE
     Indication: SYNCOPE
     Dosage: 40 MILLIGRAM DAILY
     Route: 065
  18. OMEPRAZOLE. [Concomitant]
     Active Substance: OMEPRAZOLE
     Indication: PRESYNCOPE
     Dosage: 40 MILLIGRAM, QD
     Route: 005
  19. OMEPRAZOLE. [Concomitant]
     Active Substance: OMEPRAZOLE
     Indication: ORTHOSTATIC HYPERTENSION
  20. ROSUVASTATIN. [Concomitant]
     Active Substance: ROSUVASTATIN
     Indication: ACUTE CORONARY SYNDROME
     Dosage: UNK
     Route: 065
  21. CLOPIDOGREL [Suspect]
     Active Substance: CLOPIDOGREL BISULFATE
     Indication: CORONARY ARTERY DISEASE
     Dosage: 75 MILLIGRAM, QD
     Route: 048
     Dates: start: 2016
  22. RASAGILINE MESILATE [Suspect]
     Active Substance: RASAGILINE MESYLATE
     Indication: HYPERTENSION
     Dosage: 1 MILLIGRAM, QD
     Route: 048
     Dates: start: 2017
  23. LEVODOPA [Suspect]
     Active Substance: LEVODOPA
     Indication: PARKINSON^S DISEASE
     Dosage: 250 MILLIGRAM,250 MG/ 25 MG (250 MG/ 25 MG, 1 IN 1 D)
     Route: 065
     Dates: start: 2017
  24. BISOPROLOL [Suspect]
     Active Substance: BISOPROLOL
     Indication: CORONARY ARTERY DISEASE
     Dosage: 5 MILLIGRAM, QD
     Route: 048
     Dates: start: 2016
  25. LEVODOPA/CARBIDOPA [Suspect]
     Active Substance: CARBIDOPA\LEVODOPA
     Dosage: 250/25 MG PER DAY (INTESTINAL GEL)
     Route: 050
     Dates: start: 2017
  26. RASAGILINE. [Suspect]
     Active Substance: RASAGILINE
     Indication: PARKINSON^S DISEASE
     Dosage: 1 MILLIGRAM, QD
     Route: 005
     Dates: start: 2017
  27. MIDORINE [Suspect]
     Active Substance: MIDODRINE
     Indication: PRODUCT USED FOR UNKNOWN INDICATION
     Dosage: 2.5 MILLIGRAM, QD(2.5 MILLIGRAM, ONCE A DAY)
     Route: 065
  28. ROSUVASTATIN. [Concomitant]
     Active Substance: ROSUVASTATIN
     Indication: HYPERTENSION
  29. ROSUVASTATIN. [Concomitant]
     Active Substance: ROSUVASTATIN
     Indication: BLOOD PRESSURE SYSTOLIC
  30. RASAGILINE MESILATE [Suspect]
     Active Substance: RASAGILINE MESYLATE
     Indication: PARKINSON^S DISEASE
     Dosage: 1 MILLIGRAM, QD
     Route: 048
     Dates: start: 2017
  31. RASAGILINE MESILATE [Suspect]
     Active Substance: RASAGILINE MESYLATE
     Dosage: 1 MILLIGRAM, QD
     Route: 048
     Dates: start: 2017
  32. BISOPROLOL [Suspect]
     Active Substance: BISOPROLOL
     Indication: HYPERTENSION
  33. RIVAROXABAN [Suspect]
     Active Substance: RIVAROXABAN
     Indication: ANTICOAGULANT THERAPY
     Dosage: 20 MILLIGRAM, QD
     Route: 065
     Dates: start: 2016
  34. ROSUVASTATIN. [Concomitant]
     Active Substance: ROSUVASTATIN
     Indication: ORTHOSTATIC HYPERTENSION
     Dosage: 10 MILLIGRAM, QD
     Route: 048
     Dates: start: 2016
  35. RAMIPRIL. [Suspect]
     Active Substance: RAMIPRIL
     Indication: HYPERTENSION
     Dosage: 5 MG, QD
     Route: 048
     Dates: start: 2016
  36. OMEPRAZOLE. [Concomitant]
     Active Substance: OMEPRAZOLE
     Indication: INTERMITTENT CLAUDICATION
     Dosage: UNK
  37. ROSUVASTATIN. [Concomitant]
     Active Substance: ROSUVASTATIN
     Indication: CORONARY ARTERY DISEASE
     Dosage: 20 MILLIGRAM, QD
     Route: 048
     Dates: start: 2016
  38. ROSUVASTATIN. [Concomitant]
     Active Substance: ROSUVASTATIN
     Indication: PRESYNCOPE
  39. ROSUVASTATIN. [Concomitant]
     Active Substance: ROSUVASTATIN
     Indication: SYNCOPE
  40. CLOPIDOGREL [Concomitant]
     Active Substance: CLOPIDOGREL BISULFATE
     Indication: CEREBROVASCULAR DISORDER
  41. LERCANIDIPINE [Suspect]
     Active Substance: LERCANIDIPINE
     Dosage: UNK
     Route: 065
  42. CLOPIDOGREL [Suspect]
     Active Substance: CLOPIDOGREL BISULFATE
     Dosage: 75 MILLIGRAM, QD
     Route: 065
  43. CANDESARTAN. [Suspect]
     Active Substance: CANDESARTAN
     Dosage: UNK
     Route: 065
  44. RAMIPRIL. [Suspect]
     Active Substance: RAMIPRIL
     Indication: CORONARY ARTERY DISEASE
     Dosage: UNK
     Route: 065
  45. LEVODOPA/CARBIDOPA [Suspect]
     Active Substance: CARBIDOPA\LEVODOPA
     Indication: PARKINSON^S DISEASE
     Dosage: 1 DF, QD (25/250 MG)
     Route: 065
  46. LEVODOPA/CARBIDOPA [Suspect]
     Active Substance: CARBIDOPA\LEVODOPA
     Dosage: 1 DF, QD (25/250 MG)
     Route: 050
  47. RASAGILINE. [Concomitant]
     Active Substance: RASAGILINE
     Indication: PARKINSON^S DISEASE
     Dosage: 1 MG, QD
     Route: 065
     Dates: start: 2017
  48. RASAGILINE. [Concomitant]
     Active Substance: RASAGILINE
     Dosage: UNK
     Route: 048
  49. CLOPIDOGREL [Concomitant]
     Active Substance: CLOPIDOGREL BISULFATE
     Indication: ACUTE CORONARY SYNDROME
     Dosage: 75 MG, QD

REACTIONS (11)
  - Condition aggravated [Recovered/Resolved]
  - Orthostatic hypotension [Recovered/Resolved]
  - Abdominal pain [Unknown]
  - Syncope [Recovered/Resolved with Sequelae]
  - Presyncope [Recovered/Resolved]
  - Intermittent claudication [Unknown]
  - Condition aggravated [Recovered/Resolved]
  - Mesenteric artery thrombosis [Unknown]
  - Supine hypertension [Recovering/Resolving]
  - Dizziness [Recovered/Resolved]
  - Condition aggravated [Unknown]

NARRATIVE: CASE EVENT DATE: 2016
